FAERS Safety Report 15877093 (Version 1)
Quarter: 2019Q1

REPORT INFORMATION
  Report Type: Report from Study
  Country: US (occurrence: US)
  Receive Date: 20190128
  Receipt Date: 20190128
  Transmission Date: 20190417
  Serious: Yes (Other)
  Sender: FDA-Public Use
  Company Number: US-SA-2017SA067510

PATIENT
  Age: 64 Year
  Sex: Female

DRUGS (5)
  1. HUMULIN N [Concomitant]
     Active Substance: INSULIN HUMAN
  2. NOVOLOG [Concomitant]
     Active Substance: INSULIN ASPART
  3. INSULIN GLARGINE [Suspect]
     Active Substance: INSULIN GLARGINE
     Indication: DIABETES MELLITUS
     Dosage: UNK UNK,UNK
     Route: 065
  4. LANTUS [Suspect]
     Active Substance: INSULIN GLARGINE
     Indication: TYPE 2 DIABETES MELLITUS
     Dosage: 80 IU, BID
     Route: 058
  5. HUMULIN R [Concomitant]
     Active Substance: INSULIN HUMAN
     Indication: TYPE 2 DIABETES MELLITUS

REACTIONS (11)
  - Medication error [Unknown]
  - Product dose omission [Unknown]
  - Insurance issue [Unknown]
  - Thyroid disorder [Unknown]
  - Arthritis [Unknown]
  - Inappropriate schedule of product administration [Unknown]
  - Atrial fibrillation [Unknown]
  - Blood glucose decreased [Unknown]
  - Cough [Unknown]
  - Asthma [Unknown]
  - Drug ineffective [Unknown]

NARRATIVE: CASE EVENT DATE: 20190111
